FAERS Safety Report 5521023-5 (Version None)
Quarter: 2007Q4

REPORT INFORMATION
  Report Type: 
  Country: None (occurrence: None)
  Receive Date: 20071119
  Receipt Date: 20071109
  Transmission Date: 20080405
  Serious: Yes (Hospitalization, Disabling, Other)
  Sender: FDA-Public Use
  Company Number: US-ROCHE-393367

PATIENT
  Age: 17 Year
  Sex: Male
  Weight: 83.9 kg

DRUGS (2)
  1. ACCUTANE [Suspect]
     Indication: ACNE
     Route: 048
     Dates: start: 19910125, end: 19910517
  2. ACCUTANE [Suspect]
     Route: 048
     Dates: start: 19920124, end: 19920326

REACTIONS (15)
  - ABDOMINAL PAIN UPPER [None]
  - ANAEMIA [None]
  - ANAL STENOSIS [None]
  - BACK PAIN [None]
  - COLITIS [None]
  - COLITIS ULCERATIVE [None]
  - DIARRHOEA [None]
  - GASTROINTESTINAL DISORDER [None]
  - INFLAMMATORY BOWEL DISEASE [None]
  - INTESTINAL HAEMORRHAGE [None]
  - MULTI-ORGAN DISORDER [None]
  - NAUSEA [None]
  - PROCTITIS ULCERATIVE [None]
  - RECTAL HAEMORRHAGE [None]
  - RED BLOOD CELL SEDIMENTATION RATE INCREASED [None]
